FAERS Safety Report 6099019-7 (Version None)
Quarter: 2009Q1

REPORT INFORMATION
  Report Type: 
  Country: None (occurrence: None)
  Receive Date: 20090302
  Receipt Date: 20090218
  Transmission Date: 20090719
  Serious: Yes (Other)
  Sender: FDA-Public Use
  Company Number: US-PFIZER INC-2009172878

PATIENT
  Sex: Male
  Weight: 79.365 kg

DRUGS (12)
  1. VIAGRA [Suspect]
     Indication: ERECTILE DYSFUNCTION
     Dosage: 50 MG, UNK
  2. LIPITOR [Suspect]
  3. TAMSULOSIN HYDROCHLORIDE [Suspect]
     Indication: PROSTATOMEGALY
  4. ZOCOR [Suspect]
  5. SIMVASTATIN [Concomitant]
     Dosage: 40 MG, UNK
  6. LIPITOR [Concomitant]
  7. VYTORIN [Concomitant]
  8. CARDIZEM CD [Concomitant]
     Dosage: UNK
  9. ETODOLAC [Concomitant]
     Dosage: UNK
  10. LORAZEPAM [Concomitant]
     Dosage: UNK
  11. SOTALOL [Concomitant]
     Dosage: UNK
  12. ACIPHEX [Concomitant]
     Dosage: UNK

REACTIONS (5)
  - DRUG INEFFECTIVE [None]
  - HEART RATE DECREASED [None]
  - MALAISE [None]
  - PHARYNGEAL NEOPLASM [None]
  - UNEVALUABLE EVENT [None]
